FAERS Safety Report 5001976-4 (Version None)
Quarter: 2006Q2

REPORT INFORMATION
  Report Type: 
  Country: None (occurrence: None)
  Receive Date: 20060515
  Receipt Date: 20050112
  Transmission Date: 20061013
  Serious: Yes (Hospitalization)
  Sender: FDA-Public Use
  Company Number: US-MERCK-0501USA01869

PATIENT
  Age: 49 Year
  Sex: Female
  Weight: 77 kg

DRUGS (2)
  1. VIOXX [Suspect]
     Indication: ARTHRALGIA
     Route: 048
     Dates: start: 20001101, end: 20040913
  2. VIOXX [Suspect]
     Indication: FIBROMYALGIA
     Route: 048
     Dates: start: 20001101, end: 20040913

REACTIONS (4)
  - ANGINA PECTORIS [None]
  - CARDIAC DISORDER [None]
  - HYPERTENSION [None]
  - MYOCARDIAL INFARCTION [None]
